FAERS Safety Report 4296712-3 (Version None)
Quarter: 2004Q1

REPORT INFORMATION
  Report Type: 
  Country: None (occurrence: None)
  Receive Date: 20040126
  Receipt Date: 20030717
  Transmission Date: 20041129
  Serious: No
  Sender: FDA-Public Use
  Company Number: USA030741843

PATIENT
  Age: 13 Year
  Sex: Female
  Weight: 85 kg

DRUGS (1)
  1. STRATTERA [Suspect]
     Indication: ATTENTION DEFICIT/HYPERACTIVITY DISORDER
     Dosage: 80 MG
     Dates: end: 20030714

REACTIONS (1)
  - THYROID FUNCTION TEST ABNORMAL [None]
